FAERS Safety Report 8111942-8 (Version None)
Quarter: 2012Q1

REPORT INFORMATION
  Report Type: 
  Country: None (occurrence: None)
  Receive Date: 20120203
  Receipt Date: 20110707
  Transmission Date: 20120608
  Serious: No
  Sender: FDA-Public Use
  Company Number: US-GLAXOSMITHKLINE-A0935328A

PATIENT
  Age: 63 Year
  Sex: Male

DRUGS (4)
  1. ANTI-CHOLESTEROL MEDICATION [Concomitant]
  2. MEDICATION FOR HIGH BLOOD PRESSURE [Concomitant]
  3. ARIXTRA [Suspect]
     Indication: THROMBOSIS
     Dosage: 10MG PER DAY
     Route: 058
     Dates: start: 20110310
  4. CIRCULATORY MEDICATION [Concomitant]

REACTIONS (3)
  - RASH MACULAR [None]
  - RASH ERYTHEMATOUS [None]
  - RASH [None]
